FAERS Safety Report 4550255-8 (Version None)
Quarter: 2004Q4

REPORT INFORMATION
  Report Type: 
  Country: None (occurrence: None)
  Receive Date: 20041227
  Receipt Date: 20041112
  Transmission Date: 20050328
  Serious: No
  Sender: FDA-Public Use
  Company Number: 04P-163-0280443-00

PATIENT
  Age: 64 Year
  Sex: Female
  Weight: 58.9676 kg

DRUGS (13)
  1. HUMIRA [Suspect]
     Indication: RHEUMATOID ARTHRITIS
     Dosage: 40 MG, 1 IN 2 WK, SUBCUTANEOUS
     Route: 058
     Dates: start: 20040701
  2. FOLIC ACID [Concomitant]
  3. METOPROLOL SUCCINATE [Concomitant]
  4. PREDNISONE [Concomitant]
  5. POTASSIUM CHLORIDE [Concomitant]
  6. DIGOXIN [Concomitant]
  7. ALENDRONATE SODIUM [Concomitant]
  8. LISINOPRIL [Concomitant]
  9. ACTOCON [Concomitant]
  10. ESTROGENS CONJUGATED [Concomitant]
  11. SERTRALINE HYDROCHLORIDE [Concomitant]
  12. NITROGLYCERIN [Concomitant]
  13. METHOTREXATE [Concomitant]

REACTIONS (3)
  - INJECTION SITE ERYTHEMA [None]
  - INJECTION SITE PRURITUS [None]
  - INJECTION SITE SWELLING [None]
